FAERS Safety Report 6726829-2 (Version None)
Quarter: 2010Q2

REPORT INFORMATION
  Report Type: 
  Country: None (occurrence: None)
  Receive Date: 20100516
  Receipt Date: 20100506
  Transmission Date: 20101027
  Serious: Yes (Other)
  Sender: FDA-Public Use
  Company Number: US-JNJFOC-20100502603

PATIENT
  Sex: Male
  Weight: 136.08 kg

DRUGS (11)
  1. RISPERDAL [Suspect]
     Indication: DEPRESSION
     Route: 048
  2. ACETAMINOPHEN [Concomitant]
     Indication: PAIN
     Route: 048
  3. POLYVINYL ALCOHOL [Concomitant]
     Dosage: 1 DROP INTO EACH EYE IF NEEDED
     Route: 065
  4. ASPIRIN [Concomitant]
     Dosage: 1 TABLET
     Route: 048
  5. BENZOYL PEROXIDE [Concomitant]
     Route: 065
  6. ENALAPRIL MALEATE [Concomitant]
     Route: 048
  7. CALCIUM POLYCARBOPHIL [Concomitant]
     Dosage: 4 TABLETS EVERY DAY
     Route: 048
  8. GABAPENTIN [Concomitant]
     Route: 048
  9. HYDROXYZINE HCL [Concomitant]
     Route: 048
  10. METFORMIN HCL [Concomitant]
     Route: 048
  11. SIMVASTATIN [Concomitant]
     Route: 048

REACTIONS (2)
  - DIABETES MELLITUS [None]
  - DIABETIC EYE DISEASE [None]
